FAERS Safety Report 15610228 (Version 1)
Quarter: 2018Q4

REPORT INFORMATION
  Report Type: Spontaneous
  Country: US (occurrence: US)
  Receive Date: 20181113
  Receipt Date: 20181113
  Transmission Date: 20190205
  Serious: No
  Sender: FDA-Public Use
  Company Number: US-ROCHE-2059066

PATIENT

DRUGS (2)
  1. FLU SHOT [Concomitant]
     Active Substance: INFLUENZA VIRUS VACCINE
     Route: 065
  2. TAMIFLU [Suspect]
     Active Substance: OSELTAMIVIR PHOSPHATE
     Indication: PRODUCT USED FOR UNKNOWN INDICATION
     Route: 065
     Dates: start: 20180116

REACTIONS (2)
  - Condition aggravated [Unknown]
  - Malaise [Unknown]
